FAERS Safety Report 5164721-8 (Version None)
Quarter: 2006Q4

REPORT INFORMATION
  Report Type: 
  Country: None (occurrence: None)
  Receive Date: 20061205
  Receipt Date: 20061016
  Transmission Date: 20070319
  Serious: Yes (Disabling)
  Sender: FDA-Public Use
  Company Number: BR-GLAXOSMITHKLINE-A0624115A

PATIENT
  Age: 46 Year
  Sex: Female
  Weight: 90 kg

DRUGS (8)
  1. PAXIL CR [Suspect]
     Indication: DEPRESSION
     Dosage: 25MG PER DAY
     Route: 048
     Dates: start: 20050501, end: 20060921
  2. AROPAX [Suspect]
     Indication: DEPRESSION
     Dosage: 20MG PER DAY
     Route: 048
     Dates: start: 20060925, end: 20061009
  3. TOPAMAX [Concomitant]
     Indication: WEIGHT DECREASED
     Dates: start: 20060816, end: 20060818
  4. RIVOTRIL [Concomitant]
     Dates: start: 20040101
  5. ATENOL [Concomitant]
     Dates: start: 19860101
  6. NAPRIX [Concomitant]
     Dates: start: 20020101
  7. CIPROFIBRATE [Concomitant]
     Dosage: 100MG PER DAY
     Dates: start: 20020101
  8. LEXAPRO [Concomitant]
     Dates: start: 20061014

REACTIONS (9)
  - APATHY [None]
  - DRUG INTOLERANCE [None]
  - FATIGUE [None]
  - HEADACHE [None]
  - NAUSEA [None]
  - SOMNOLENCE [None]
  - THERAPEUTIC RESPONSE UNEXPECTED WITH DRUG SUBSTITUTION [None]
  - VISION BLURRED [None]
  - WEIGHT INCREASED [None]
